FAERS Safety Report 5411798-8 (Version None)
Quarter: 2007Q3

REPORT INFORMATION
  Report Type: 
  Country: None (occurrence: None)
  Receive Date: 20070713
  Receipt Date: 20070318
  Transmission Date: 20080115
  Serious: No
  Sender: FDA-Public Use
  Company Number: 2007SP000970

PATIENT
  Age: 49 Year
  Sex: Male
  Weight: 108.8633 kg

DRUGS (9)
  1. LUNESTA [Suspect]
     Indication: INSOMNIA
     Dosage: 2 MG;HS;ORAL ; 4 MG;1X;ORAL ; 2 MG;PRN;ORAL
     Route: 048
     Dates: start: 20070301, end: 20070301
  2. LUNESTA [Suspect]
     Indication: INSOMNIA
     Dosage: 2 MG;HS;ORAL ; 4 MG;1X;ORAL ; 2 MG;PRN;ORAL
     Route: 048
     Dates: start: 20070301
  3. LUNESTA [Suspect]
     Indication: INSOMNIA
     Dosage: 2 MG;HS;ORAL ; 4 MG;1X;ORAL ; 2 MG;PRN;ORAL
     Route: 048
     Dates: start: 20070301
  4. AMBIEN [Concomitant]
  5. LORATADINE [Concomitant]
  6. TOPAMAX [Concomitant]
  7. ATIVAN [Concomitant]
  8. EYE DROPS [Concomitant]
  9. PRILOSEC [Concomitant]

REACTIONS (4)
  - FATIGUE [None]
  - FEELING ABNORMAL [None]
  - HEADACHE [None]
  - MIDDLE INSOMNIA [None]
